FAERS Safety Report 24372513 (Version 1)
Quarter: 2024Q3

REPORT INFORMATION
  Report Type: Spontaneous
  Country: KR (occurrence: KR)
  Receive Date: 20240927
  Receipt Date: 20240927
  Transmission Date: 20241016
  Serious: Yes (Other)
  Sender: PFIZER
  Company Number: KR-PFIZER INC-202400262118

PATIENT
  Age: 29 Year
  Sex: Female

DRUGS (2)
  1. ZITHROMAX [Suspect]
     Active Substance: AZITHROMYCIN DIHYDRATE
     Indication: Genital infection female
     Dosage: 250 MG, 1X/DAY
     Route: 048
     Dates: start: 20220613, end: 20220613
  2. MOSAPRIDE CITRATE DIHYDRATE [Suspect]
     Active Substance: MOSAPRIDE CITRATE DIHYDRATE
     Indication: Genital infection female
     Dosage: 5 MG, 1X/DAY
     Route: 048
     Dates: start: 20220613, end: 20220613

REACTIONS (10)
  - Anaphylactic reaction [Recovered/Resolved]
  - Depressed level of consciousness [Recovered/Resolved]
  - Urticaria [Recovered/Resolved]
  - Face oedema [Recovered/Resolved]
  - Dyspnoea [Recovered/Resolved]
  - Hypotension [Recovered/Resolved]
  - Vision blurred [Recovered/Resolved]
  - Feeling hot [Recovered/Resolved]
  - Generalised oedema [Recovered/Resolved]
  - Headache [Recovered/Resolved]

NARRATIVE: CASE EVENT DATE: 20220613
